FAERS Safety Report 9280970 (Version 1)
Quarter: 2013Q2

REPORT INFORMATION
  Report Type: Spontaneous
  Country: US (occurrence: None)
  Receive Date: 20130508
  Receipt Date: 20130508
  Transmission Date: 20140414
  Serious: No
  Sender: FDA-Public Use
  Company Number: None

PATIENT
  Age: 46 Year
  Sex: Female

DRUGS (2)
  1. PEGASYS 180MCG GENENTECH [Suspect]
     Route: 058
     Dates: start: 20130409
  2. RIBAVIRIN [Suspect]
     Route: 048
     Dates: start: 20130409

REACTIONS (2)
  - Depression [None]
  - Sleep disorder [None]
